FAERS Safety Report 20397145 (Version 2)
Quarter: 2022Q1

REPORT INFORMATION
  Report Type: Spontaneous
  Country: US (occurrence: US)
  Receive Date: 20220131
  Receipt Date: 20220201
  Transmission Date: 20220423
  Serious: No
  Sender: FDA-Public Use
  Company Number: US-ABBVIE-21K-163-3851376-00

PATIENT
  Sex: Female

DRUGS (6)
  1. HUMIRA [Suspect]
     Active Substance: ADALIMUMAB
     Indication: Ankylosing spondylitis
     Route: 058
     Dates: start: 2018
  2. HUMIRA [Suspect]
     Active Substance: ADALIMUMAB
     Indication: Psoriatic arthropathy
  3. HUMIRA [Suspect]
     Active Substance: ADALIMUMAB
     Indication: Fibromyalgia
  4. HUMIRA [Suspect]
     Active Substance: ADALIMUMAB
     Indication: Intervertebral disc degeneration
  5. VITAMIN D [Concomitant]
     Active Substance: VITAMIN D NOS
     Indication: Autoimmune disorder
  6. MELOXICAM [Concomitant]
     Active Substance: MELOXICAM
     Indication: Autoimmune disorder

REACTIONS (2)
  - Off label use [Recovering/Resolving]
  - Off label use [Not Recovered/Not Resolved]

NARRATIVE: CASE EVENT DATE: 20180101
